FAERS Safety Report 5755984-6 (Version None)
Quarter: 2008Q2

REPORT INFORMATION
  Report Type: 
  Country: None (occurrence: None)
  Receive Date: 20080602
  Receipt Date: 20080402
  Transmission Date: 20081010
  Serious: No
  Sender: FDA-Public Use
  Company Number: US-BAYER-200811376BCC

PATIENT
  Age: 77 Year
  Sex: Female
  Weight: 60 kg

DRUGS (2)
  1. ALEVE (CAPLET) [Suspect]
     Indication: OEDEMA PERIPHERAL
     Dosage: TOTAL DAILY DOSE: 440 MG  UNIT DOSE: 220 MG
     Route: 048
     Dates: start: 20080402, end: 20080402
  2. GLUCOSAMINE SULPHATE [Concomitant]

REACTIONS (2)
  - PRURITUS [None]
  - SKIN WARM [None]
